FAERS Safety Report 7029881-2 (Version None)
Quarter: 2010Q4

REPORT INFORMATION
  Report Type: 
  Country: None (occurrence: None)
  Receive Date: 20101006
  Receipt Date: 20101001
  Transmission Date: 20110411
  Serious: No
  Sender: FDA-Public Use
  Company Number: US-BIOGENIDEC-2010BI034198

PATIENT
  Age: 34 Year
  Sex: Female

DRUGS (2)
  1. AVONEX [Suspect]
     Indication: MULTIPLE SCLEROSIS
     Route: 030
     Dates: start: 20050211, end: 20050501
  2. AVONEX [Suspect]
     Route: 030
     Dates: start: 20070119, end: 20080920

REACTIONS (2)
  - MIGRAINE [None]
  - TREMOR [None]
